FAERS Safety Report 4408517-0 (Version None)
Quarter: 2004Q3

REPORT INFORMATION
  Report Type: 
  Country: None (occurrence: None)
  Receive Date: 20040726
  Receipt Date: 20040528
  Transmission Date: 20050211
  Serious: Yes (Hospitalization)
  Sender: FDA-Public Use
  Company Number: 2004UW11392

PATIENT
  Age: 69 Year
  Sex: Female

DRUGS (14)
  1. CRESTOR [Suspect]
     Dosage: 10 MG PO
     Route: 048
  2. CRESTOR [Suspect]
     Dosage: 20 MG PO
     Route: 048
  3. CRESTOR [Suspect]
     Dosage: 40 MG PO
     Route: 048
  4. ZOCOR ^MERC^ [Concomitant]
  5. ZETIA [Concomitant]
  6. LIPITOR [Concomitant]
  7. ZOLOFT [Concomitant]
  8. HUMALOG [Concomitant]
  9. RANITIDINE [Concomitant]
  10. POTASSIUM [Concomitant]
  11. METOPROLOL [Concomitant]
  12. ARTHRITIS BAYER TIMED RELEASE ASPIRIN [Concomitant]
  13. BENICAR [Concomitant]
  14. DYAZIDE [Concomitant]

REACTIONS (2)
  - RENAL FAILURE [None]
  - RHABDOMYOLYSIS [None]
